FAERS Safety Report 9397352 (Version 1)
Quarter: 2013Q3

REPORT INFORMATION
  Report Type: Spontaneous
  Country: US (occurrence: None)
  Receive Date: 20130708
  Receipt Date: 20130708
  Transmission Date: 20140515
  Serious: Yes (Death)
  Sender: FDA-Public Use
  Company Number: 2013-262

PATIENT
  Age: 73 Year
  Sex: Female

DRUGS (5)
  1. PRIALT (ZICONOTIDE) INTRATHECAL INFUSION [Suspect]
     Indication: PAIN
     Dosage: 0.26 MCG, ONCE/HOUR, INTRATHECAL
  2. DILAUDID (HYDROMORPHONE HYDROCHLORIDE) INJECTION [Suspect]
     Indication: PAIN
     Dosage: 1.04 MG, ONCE/HOUR, INTRATHECAL
  3. BACLOFEN (BACLOFEN) INJECTION [Suspect]
     Indication: MUSCLE SPASTICITY
     Dosage: 8.7 MCG, ONCE/HOUR, INTRATHECAL
  4. BUPIVACAINE HYDROCHLORIDE [Suspect]
     Indication: PAIN
     Dosage: 0.26 MCG, ONCE/HOUR, INTRATHECAL
  5. CLONIDINE (CLONIDINE) INJECTION [Suspect]
     Indication: PAIN
     Dosage: 43.5 MCG, ONCE/HOUR, INTRATHECAL

REACTIONS (2)
  - Decubitus ulcer [None]
  - Infection [None]
